FAERS Safety Report 17533235 (Version 4)
Quarter: 2020Q3

REPORT INFORMATION
  Report Type: Report from Study
  Country: US (occurrence: US)
  Receive Date: 20200312
  Receipt Date: 20200908
  Transmission Date: 20201102
  Serious: Yes (Other)
  Sender: FDA-Public Use
  Company Number: US-PFIZER INC-2020043469

PATIENT
  Age: 82 Year
  Sex: Female

DRUGS (3)
  1. FEMARA [Concomitant]
     Active Substance: LETROZOLE
     Dosage: UNK, DAILY
     Route: 048
  2. IBRANCE [Suspect]
     Active Substance: PALBOCICLIB
     Indication: BREAST CANCER FEMALE
     Dosage: 100 MG, CYCLIC (DAILY FOR 21 DAYS ON AND 7 DAYS OFF)
     Route: 048
     Dates: start: 20200128, end: 20200714
  3. BUTALBITAL [Concomitant]
     Active Substance: BUTALBITAL
     Indication: MIGRAINE
     Dosage: UNK

REACTIONS (12)
  - Red blood cell count decreased [Unknown]
  - Urinary tract infection [Unknown]
  - Bladder discomfort [Unknown]
  - Pruritus [Unknown]
  - Anaemia [Unknown]
  - Fatigue [Unknown]
  - Pollakiuria [Unknown]
  - Platelet count decreased [Unknown]
  - Toothache [Unknown]
  - White blood cell count decreased [Unknown]
  - Myelosuppression [Recovered/Resolved]
  - Therapeutic response unexpected [Unknown]

NARRATIVE: CASE EVENT DATE: 2020
